FAERS Safety Report 6031080-8 (Version None)
Quarter: 2009Q1

REPORT INFORMATION
  Report Type: 
  Country: None (occurrence: None)
  Receive Date: 20090108
  Receipt Date: 20090105
  Transmission Date: 20090719
  Serious: Yes (Other)
  Sender: FDA-Public Use
  Company Number: US-WYE-H07528809

PATIENT
  Age: 60 Year
  Sex: Male

DRUGS (7)
  1. TORISEL [Suspect]
     Indication: RENAL CELL CARCINOMA
     Route: 042
     Dates: start: 20081222, end: 20090105
  2. COMPAZINE [Concomitant]
  3. OMEPRAZOLE [Concomitant]
  4. SIMVASTATIN [Concomitant]
  5. PERCOCET [Concomitant]
  6. DIOVAN [Concomitant]
  7. ATIVAN [Concomitant]

REACTIONS (3)
  - ANGIOEDEMA [None]
  - RASH MACULAR [None]
  - RASH PRURITIC [None]
